FAERS Safety Report 7680261-6 (Version None)
Quarter: 2011Q3

REPORT INFORMATION
  Report Type: 
  Country: None (occurrence: None)
  Receive Date: 20110812
  Receipt Date: 20110809
  Transmission Date: 20111222
  Serious: Yes (Other)
  Sender: FDA-Public Use
  Company Number: US-BAYER-2011-065898

PATIENT
  Sex: Male

DRUGS (3)
  1. MULTIHANCE [Suspect]
     Indication: NUCLEAR MAGNETIC RESONANCE IMAGING
     Dosage: UNK
     Dates: start: 20051212, end: 20051212
  2. OPTIMARK [Suspect]
     Indication: NUCLEAR MAGNETIC RESONANCE IMAGING
     Dosage: UNK
     Dates: start: 20060208, end: 20060208
  3. MAGNEVIST [Suspect]
     Indication: NUCLEAR MAGNETIC RESONANCE IMAGING
     Dosage: 18 ML, ONCE
     Dates: start: 20020528, end: 20020528

REACTIONS (6)
  - NEPHROGENIC SYSTEMIC FIBROSIS [None]
  - MOBILITY DECREASED [None]
  - SKIN DISORDER [None]
  - ARTHROPATHY [None]
  - DYSSTASIA [None]
  - GAIT DISTURBANCE [None]
